FAERS Safety Report 11778676 (Version 1)
Quarter: 2015Q4

REPORT INFORMATION
  Report Type: Spontaneous
  Country: CH (occurrence: CH)
  Receive Date: 20151125
  Receipt Date: 20151125
  Transmission Date: 20160304
  Serious: Yes (Disabling, Other)
  Sender: FDA-Public Use
  Company Number: CH-PFIZER INC-2015397831

PATIENT
  Age: 74 Year
  Sex: Male
  Weight: 70 kg

DRUGS (15)
  1. CYTOTEC [Suspect]
     Active Substance: MISOPROSTOL
     Indication: PROPHYLAXIS AGAINST GASTROINTESTINAL ULCER
     Dosage: 200 UG, 4X/DAY
     Route: 048
  2. PROSTA URGENIN [Concomitant]
     Dosage: 320 MG, 2X/DAY
     Route: 048
  3. IBEROGAST [Concomitant]
     Active Substance: HERBALS
     Dosage: 20 GTT, 3X/DAY
  4. FLECTOPARIN [Concomitant]
     Route: 061
  5. EUPHORBIUM COMP [Concomitant]
     Route: 045
  6. IRFEN [Suspect]
     Active Substance: IBUPROFEN
     Dosage: UNK
  7. RHINOVENT [Concomitant]
     Route: 045
  8. ANGOCIN [Concomitant]
  9. JARSIN /01166804/ [Concomitant]
     Dosage: 450 MG, 2X/DAY
     Route: 048
     Dates: end: 201505
  10. MOTILIUM [Concomitant]
     Active Substance: DOMPERIDONE
  11. ECHINACEA [Concomitant]
     Active Substance: ECHINACEA, UNSPECIFIED
     Dosage: 3 DF, 2X/DAY
     Route: 048
  12. CALCIMAGON D3 [Concomitant]
     Active Substance: CALCIUM\CHOLECALCIFEROL
     Dosage: 1 DF, 2X/DAY
     Route: 048
  13. TEBOKAN [Concomitant]
     Dosage: 120 MG, 2X/DAY
     Route: 048
  14. RIOPAN /00141701/ [Concomitant]
     Active Substance: MAGALDRATE
     Route: 048
  15. RELAXAN [Concomitant]
     Route: 048

REACTIONS (1)
  - IIIrd nerve paresis [Recovering/Resolving]

NARRATIVE: CASE EVENT DATE: 201508
